FAERS Safety Report 9723435 (Version 1)
Quarter: 2013Q4

REPORT INFORMATION
  Report Type: Spontaneous
  Country: US (occurrence: US)
  Receive Date: 20131202
  Receipt Date: 20131202
  Transmission Date: 20140711
  Serious: Yes (Other)
  Sender: FDA-Public Use
  Company Number: US-ABBVIE-13P-163-1172940-00

PATIENT
  Sex: Female

DRUGS (5)
  1. HUMIRA [Suspect]
     Indication: COLITIS ULCERATIVE
     Dosage: LOADING DOSE
     Dates: start: 20131018, end: 20131018
  2. HUMIRA [Suspect]
     Dosage: SECOND DOSE
     Dates: start: 20131101, end: 20131101
  3. HUMIRA [Suspect]
     Dates: start: 20131115
  4. LIALDA [Concomitant]
     Indication: COLITIS ULCERATIVE
  5. IMURAN [Concomitant]
     Indication: COLITIS ULCERATIVE

REACTIONS (2)
  - Mesenteric artery thrombosis [Not Recovered/Not Resolved]
  - Abdominal pain [Not Recovered/Not Resolved]
